FAERS Safety Report 16998749 (Version 1)
Quarter: 2019Q4

REPORT INFORMATION
  Report Type: Spontaneous
  Country: US (occurrence: US)
  Receive Date: 20190925
  Receipt Date: 20190925
  Transmission Date: 20200122
  Serious: Yes (Hospitalization)
  Sender: FDA-Public Use
  Company Number: None

PATIENT
  Age: 66 Year
  Sex: Female

DRUGS (1)
  1. CAPECITABINE 500MG [Suspect]
     Active Substance: CAPECITABINE
     Indication: BREAST CANCER
     Route: 048
     Dates: start: 20190826, end: 20190911

REACTIONS (7)
  - Pyrexia [None]
  - Urinary tract infection [None]
  - Dehydration [None]
  - Cough [None]
  - Weight increased [None]
  - Renal impairment [None]
  - Blood pressure decreased [None]

NARRATIVE: CASE EVENT DATE: 20190911
